FAERS Safety Report 8248072-0 (Version None)
Quarter: 2012Q1

REPORT INFORMATION
  Report Type: 
  Country: None (occurrence: None)
  Receive Date: 20120330
  Receipt Date: 20120326
  Transmission Date: 20120608
  Serious: Yes (Hospitalization)
  Sender: FDA-Public Use
  Company Number: UA-JNJFOC-20110600858

PATIENT
  Sex: Female

DRUGS (6)
  1. GOLIMUMAB [Suspect]
     Route: 058
     Dates: start: 20060901
  2. GOLIMUMAB [Suspect]
     Indication: RHEUMATOID ARTHRITIS
     Route: 058
     Dates: start: 20110411
  3. CALCIUM/D3 [Concomitant]
     Indication: ILL-DEFINED DISORDER
     Dates: start: 20081029
  4. METHOTREXATE [Suspect]
     Indication: RHEUMATOID ARTHRITIS
     Route: 048
     Dates: start: 20060906
  5. FOLIC ACID [Concomitant]
     Route: 048
     Dates: start: 20060908
  6. BIVALOS [Concomitant]
     Indication: ILL-DEFINED DISORDER
     Route: 048
     Dates: start: 20081029

REACTIONS (1)
  - HERPES ZOSTER [None]
